FAERS Safety Report 6107745-6 (Version None)
Quarter: 2009Q1

REPORT INFORMATION
  Report Type: 
  Country: None (occurrence: None)
  Receive Date: 20090309
  Receipt Date: 20090302
  Transmission Date: 20090719
  Serious: Yes (Congenital Anomaly)
  Sender: FDA-Public Use
  Company Number: A0771907A

PATIENT
  Weight: 3 kg

DRUGS (5)
  1. COMBIVIR [Suspect]
     Indication: ANTIVIRAL TREATMENT
     Dosage: 1TAB TWICE PER DAY
  2. EPIVIR [Suspect]
     Indication: ANTIVIRAL TREATMENT
     Dosage: 300MG PER DAY
     Dates: end: 20081016
  3. RETROVIR [Suspect]
     Indication: ANTIVIRAL TREATMENT
     Dosage: 328MG PER DAY
     Dates: start: 20090107, end: 20090107
  4. VIDEX [Suspect]
     Indication: ANTIVIRAL TREATMENT
     Dosage: 400MG PER DAY
  5. REYATAZ [Suspect]
     Indication: ANTIVIRAL TREATMENT
     Dosage: 200MG PER DAY

REACTIONS (5)
  - ATRIAL SEPTAL DEFECT [None]
  - CARDIAC MURMUR [None]
  - DRUG EXPOSURE DURING PREGNANCY [None]
  - PERICARDIAL EFFUSION [None]
  - VENTRICULAR SEPTAL DEFECT [None]
